FAERS Safety Report 4320203-4 (Version None)
Quarter: 2004Q1

REPORT INFORMATION
  Report Type: 
  Country: None (occurrence: None)
  Receive Date: 20040317
  Receipt Date: 20040308
  Transmission Date: 20041129
  Serious: No
  Sender: FDA-Public Use
  Company Number: 2004GB00588

PATIENT
  Age: 70 Year
  Sex: Female
  Weight: 82.5 kg

DRUGS (7)
  1. MEROPENEM [Suspect]
     Indication: NEUTROPENIC SEPSIS
     Dosage: 1 G IV
     Route: 042
     Dates: start: 20040211, end: 20040211
  2. SIMVASTATIN [Concomitant]
  3. ATENOLOL [Concomitant]
  4. CO-TRIMOXAZOLE [Concomitant]
  5. ACYCLOVIR [Concomitant]
  6. AMILORIDE [Concomitant]
  7. LANSOPRAZOLE [Concomitant]

REACTIONS (4)
  - CONJUNCTIVAL OEDEMA [None]
  - EYE SWELLING [None]
  - PRURITUS [None]
  - VISION BLURRED [None]
